FAERS Safety Report 10256462 (Version 1)
Quarter: 2014Q2

REPORT INFORMATION
  Report Type: Report from Study
  Country: MX (occurrence: MX)
  Receive Date: 20140624
  Receipt Date: 20140624
  Transmission Date: 20141212
  Serious: Yes (Other)
  Sender: FDA-Public Use
  Company Number: MX-JNJFOC-20130304695

PATIENT
  Age: 63 Year
  Sex: Male

DRUGS (2)
  1. XARELTO [Suspect]
     Indication: EMBOLISM VENOUS
     Dosage: HALF TABLET EVERY DAY
     Route: 048
     Dates: start: 20130102
  2. XARELTO [Suspect]
     Indication: DEEP VEIN THROMBOSIS
     Dosage: HALF TABLET EVERY DAY
     Route: 048
     Dates: start: 20130102

REACTIONS (1)
  - Thrombosis [Recovered/Resolved]
